FAERS Safety Report 12627913 (Version 1)
Quarter: 2016Q3

REPORT INFORMATION
  Report Type: Spontaneous
  Country: GB (occurrence: GB)
  Receive Date: 20160807
  Receipt Date: 20160807
  Transmission Date: 20161109
  Serious: Yes (Life-Threatening, Hospitalization, Other)
  Sender: FDA-Public Use
  Company Number: GB-TEVA-681071ACC

PATIENT
  Age: 83 Year
  Sex: Male

DRUGS (8)
  1. RIVASTIGMINE. [Concomitant]
     Active Substance: RIVASTIGMINE
  2. SINEMET [Concomitant]
     Active Substance: CARBIDOPA\LEVODOPA
  3. ZOPICLONE [Concomitant]
     Active Substance: ZOPICLONE
  4. TRIMETHOPRIM. [Suspect]
     Active Substance: TRIMETHOPRIM
     Indication: URINARY TRACT INFECTION
     Dosage: 400 MILLIGRAM DAILY;
     Route: 048
     Dates: start: 20160704, end: 20160711
  5. OLMESARTAN [Suspect]
     Active Substance: OLMESARTAN
     Indication: HYPERTENSION
     Dosage: 20 MILLIGRAM DAILY; EVERY MORNING, 20 MG DAILY
     Route: 048
  6. PROCHLORPERAZINE. [Concomitant]
     Active Substance: PROCHLORPERAZINE
  7. SIMVASTATIN. [Concomitant]
     Active Substance: SIMVASTATIN
  8. TAMSULOSIN [Concomitant]
     Active Substance: TAMSULOSIN

REACTIONS (1)
  - Acute kidney injury [Recovered/Resolved]

NARRATIVE: CASE EVENT DATE: 20160713
